FAERS Safety Report 8553880-2 (Version None)
Quarter: 2012Q3

REPORT INFORMATION
  Report Type: 
  Country: None (occurrence: None)
  Receive Date: 20120731
  Receipt Date: 20120618
  Transmission Date: 20120928
  Serious: Yes (Other)
  Sender: FDA-Public Use
  Company Number: DE-ALLERGAN-1208527US

PATIENT
  Age: 26 Year
  Sex: Female
  Weight: 65 kg

DRUGS (2)
  1. PREDNISOLONE ACETATE [Suspect]
     Indication: PRODUCT USED FOR UNKNOWN INDICATION
     Dosage: THERAPEUTIC DOSAGE
     Route: 047
     Dates: start: 20120616
  2. BORO-SCOPOL [Concomitant]
     Indication: PRODUCT USED FOR UNKNOWN INDICATION
     Route: 047

REACTIONS (4)
  - HEADACHE [None]
  - EYE SWELLING [None]
  - BLINDNESS [None]
  - FATIGUE [None]
